FAERS Safety Report 10617791 (Version 3)
Quarter: 2019Q1

REPORT INFORMATION
  Report Type: Spontaneous
  Country: ES (occurrence: ES)
  Receive Date: 20141201
  Receipt Date: 20190301
  Transmission Date: 20190417
  Serious: Yes (Disabling, Other)
  Sender: FDA-Public Use
  Company Number: ES-ABBVIE-14P-144-1314025-00

PATIENT
  Age: 43 Year
  Sex: Male

DRUGS (10)
  1. KEPPRA [Suspect]
     Active Substance: LEVETIRACETAM
     Indication: EPILEPSY
     Dosage: 1 G QD
     Route: 048
     Dates: start: 2013
  2. KEPPRA [Suspect]
     Active Substance: LEVETIRACETAM
     Dosage: UNK UNK,BID;
     Route: 048
  3. DEPAKINE [Suspect]
     Active Substance: VALPROATE SODIUM
     Dosage: 1 G, QD, 500 MG, 20 TABLETS DAILY DOSE
     Route: 048
  4. JANUMET [Concomitant]
     Active Substance: METFORMIN HYDROCHLORIDE\SITAGLIPTIN PHOSPHATE
     Indication: DIABETES MELLITUS
  5. LAMICTAL [Suspect]
     Active Substance: LAMOTRIGINE
     Route: 048
  6. SECALIP SUPRA [Concomitant]
     Active Substance: FENOFIBRATE
     Indication: DYSLIPIDAEMIA
     Route: 065
  7. DEPAKINE [Suspect]
     Active Substance: VALPROATE SODIUM
     Indication: EPILEPSY
     Route: 048
     Dates: start: 2013
  8. RIVOTRIL [Suspect]
     Active Substance: CLONAZEPAM
     Indication: EPILEPSY
     Route: 048
     Dates: start: 201405
  9. LAMICTAL [Suspect]
     Active Substance: LAMOTRIGINE
     Indication: EPILEPSY
     Route: 048
     Dates: start: 2013
  10. NOIAFREN [Suspect]
     Active Substance: CLOBAZAM
     Indication: EPILEPSY
     Route: 048
     Dates: start: 2013

REACTIONS (3)
  - Vision blurred [Recovered/Resolved with Sequelae]
  - Optic neuritis [Recovering/Resolving]
  - Optic ischaemic neuropathy [Recovered/Resolved with Sequelae]

NARRATIVE: CASE EVENT DATE: 201411
